FAERS Safety Report 10048427 (Version 3)
Quarter: 2014Q2

REPORT INFORMATION
  Report Type: Spontaneous
  Country: US (occurrence: None)
  Receive Date: 20140327
  Receipt Date: 20140417
  Transmission Date: 20141212
  Serious: Yes (Death, Life-Threatening)
  Sender: FDA-Public Use
  Company Number: UTC-046257

PATIENT
  Age: 55 Year
  Sex: Female
  Weight: 76.55 kg

DRUGS (3)
  1. TYVASO [Suspect]
     Indication: PULMONARY ARTERIAL HYPERTENSION
     Route: 055
     Dates: start: 20140108, end: 20140313
  2. WARFARIN (WARFARIN) UNKNOWN [Concomitant]
  3. TRACLEER (BOSENTAN) (UNKNOWN) [Concomitant]

REACTIONS (2)
  - Death [None]
  - Acute respiratory failure [None]
